FAERS Safety Report 6490120-2 (Version None)
Quarter: 2009Q4

REPORT INFORMATION
  Report Type: 
  Country: None (occurrence: None)
  Receive Date: 20091211
  Receipt Date: 20090508
  Transmission Date: 20100525
  Serious: No
  Sender: FDA-Public Use
  Company Number: A0783209A

PATIENT
  Age: 62 Year
  Sex: Female

DRUGS (2)
  1. FLONASE [Suspect]
     Dosage: 2SPR PER DAY
     Route: 045
     Dates: start: 20090507
  2. UNITHROID [Concomitant]

REACTIONS (7)
  - HYPERHIDROSIS [None]
  - INITIAL INSOMNIA [None]
  - NAUSEA [None]
  - PANIC REACTION [None]
  - PRURITUS [None]
  - PSYCHOMOTOR HYPERACTIVITY [None]
  - TREMOR [None]
